FAERS Safety Report 5179768-5 (Version None)
Quarter: 2006Q4

REPORT INFORMATION
  Report Type: 
  Country: None (occurrence: None)
  Receive Date: 20061212
  Receipt Date: 20061129
  Transmission Date: 20070319
  Serious: Yes (Hospitalization)
  Sender: FDA-Public Use
  Company Number: 2006143248

PATIENT
  Age: 62 Year
  Sex: Female
  Weight: 39 kg

DRUGS (5)
  1. SUTENT [Suspect]
     Indication: RENAL CELL CARCINOMA STAGE UNSPECIFIED
     Dosage: SEE IMAGE
     Route: 048
     Dates: start: 20060929, end: 20061004
  2. SUTENT [Suspect]
     Indication: RENAL CELL CARCINOMA STAGE UNSPECIFIED
     Dosage: SEE IMAGE
     Route: 048
     Dates: start: 20061012, end: 20061026
  3. SUTENT [Suspect]
     Indication: RENAL CELL CARCINOMA STAGE UNSPECIFIED
     Dosage: SEE IMAGE
     Route: 048
     Dates: start: 20060818
  4. GLYBURIDE [Concomitant]
  5. CHLORTALIDONE (CHLORTALIDONE) [Concomitant]

REACTIONS (2)
  - DUODENAL FISTULA [None]
  - ENTEROCUTANEOUS FISTULA [None]
